FAERS Safety Report 8799550 (Version 1)
Quarter: 2012Q4

REPORT INFORMATION
  Report Type: Spontaneous
  Country: US (occurrence: None)
  Receive Date: 20120918
  Receipt Date: 20120918
  Transmission Date: 20130627
  Serious: Yes (Other)
  Sender: FDA-Public Use
  Company Number: None

PATIENT
  Age: 66 Year
  Sex: Female
  Weight: 57.61 kg

DRUGS (2)
  1. ADVAIR [Suspect]
     Indication: ASTHMA
     Dosage: 1 puff 2x/day inhal
     Route: 055
     Dates: start: 20111111, end: 20120917
  2. QVAR [Suspect]
     Indication: ASTHMA
     Dosage: 2 puffs 2x/day inhal
     Dates: start: 20111111, end: 20120912

REACTIONS (1)
  - Increased tendency to bruise [None]
